FAERS Safety Report 17889726 (Version 1)
Quarter: 2020Q2

REPORT INFORMATION
  Report Type: Spontaneous
  Country: US (occurrence: US)
  Receive Date: 20200612
  Receipt Date: 20200612
  Transmission Date: 20200714
  Serious: Yes (Other)
  Sender: FDA-Public Use
  Company Number: None

PATIENT
  Age: 73 Year
  Sex: Female

DRUGS (1)
  1. METFORMIN ER [Suspect]
     Active Substance: METFORMIN HYDROCHLORIDE
     Indication: DIABETES MELLITUS
     Route: 048
     Dates: start: 20200320, end: 20200608

REACTIONS (6)
  - Dysstasia [None]
  - Nausea [None]
  - Diarrhoea [None]
  - Asthenia [None]
  - Dizziness [None]
  - Abdominal discomfort [None]

NARRATIVE: CASE EVENT DATE: 20200320
